FAERS Safety Report 21393201 (Version 1)
Quarter: 2022Q3

REPORT INFORMATION
  Report Type: Other
  Country: None (occurrence: US)
  Receive Date: 20220929
  Receipt Date: 20220929
  Transmission Date: 20221026
  Serious: Yes (Hospitalization, Other)
  Sender: FDA-Public Use
  Company Number: US-B.Braun Medical Inc.-2133321

PATIENT
  Age: 30 Year
  Sex: Male

DRUGS (1)
  1. ACETAMINOPHEN [Suspect]
     Active Substance: ACETAMINOPHEN

REACTIONS (5)
  - Intentional overdose [Recovering/Resolving]
  - Sulphaemoglobinaemia [Recovering/Resolving]
  - Methaemoglobinaemia [Recovering/Resolving]
  - Renal impairment [Recovering/Resolving]
  - Drug-induced liver injury [Recovering/Resolving]
